FAERS Safety Report 6258898-0 (Version None)
Quarter: 2009Q3

REPORT INFORMATION
  Report Type: 
  Country: None (occurrence: None)
  Receive Date: 20090707
  Receipt Date: 20090629
  Transmission Date: 20100115
  Serious: Yes (Death, Hospitalization)
  Sender: FDA-Public Use
  Company Number: JP-AMGEN-US351338

PATIENT
  Age: 73 Year
  Sex: Female

DRUGS (3)
  1. ENBREL [Suspect]
     Indication: RHEUMATOID ARTHRITIS
     Route: 058
  2. ENBREL [Suspect]
     Indication: PYODERMA GANGRENOSUM
  3. RINDERON [Suspect]
     Indication: PYODERMA GANGRENOSUM
     Route: 048

REACTIONS (3)
  - INFECTION SUSCEPTIBILITY INCREASED [None]
  - MOBILITY DECREASED [None]
  - URINARY TRACT INFECTION [None]
